FAERS Safety Report 21172576 (Version 1)
Quarter: 2022Q3

REPORT INFORMATION
  Report Type: Report from Study
  Country: US (occurrence: US)
  Receive Date: 20220804
  Receipt Date: 20220804
  Transmission Date: 20221026
  Serious: Yes (Hospitalization)
  Sender: FDA-Public Use
  Company Number: US-BAYER-2022A106269

PATIENT
  Age: 56 Year
  Sex: Male
  Weight: 122.45 kg

DRUGS (2)
  1. ADEMPAS [Suspect]
     Active Substance: RIOCIGUAT
     Indication: Pulmonary arterial hypertension
     Dosage: 1 MG, TID
     Route: 048
     Dates: start: 20220701
  2. ELIQUIS [Concomitant]
     Active Substance: APIXABAN

REACTIONS (6)
  - Back pain [None]
  - Neck pain [None]
  - Headache [None]
  - Constipation [None]
  - Epistaxis [None]
  - Carbon dioxide increased [None]

NARRATIVE: CASE EVENT DATE: 20220701
